FAERS Safety Report 9562842 (Version 1)
Quarter: 2013Q3

REPORT INFORMATION
  Report Type: Spontaneous
  Country: CO (occurrence: CO)
  Receive Date: 20130927
  Receipt Date: 20130927
  Transmission Date: 20140515
  Serious: Yes (Hospitalization, Other)
  Sender: FDA-Public Use
  Company Number: CO-UCBSA-098721

PATIENT
  Age: 75 Year
  Sex: Male

DRUGS (4)
  1. CIMZIA [Suspect]
     Indication: RHEUMATOID ARTHRITIS
     Route: 058
     Dates: start: 20130717
  2. METHOTREXATE [Concomitant]
  3. PREDNISOLONE [Concomitant]
  4. VERAPAMILO [Concomitant]

REACTIONS (3)
  - Pneumonia [Recovering/Resolving]
  - Joint swelling [Recovering/Resolving]
  - Pain [Recovering/Resolving]
